FAERS Safety Report 13627080 (Version 2)
Quarter: 2017Q3

REPORT INFORMATION
  Report Type: Spontaneous
  Country: FR (occurrence: FR)
  Receive Date: 20170608
  Receipt Date: 20170828
  Transmission Date: 20171127
  Serious: Yes (Other)
  Sender: FDA-Public Use
  Company Number: FR-TEVA-775195ROM

PATIENT
  Age: 23 Year
  Sex: Male

DRUGS (3)
  1. ETOPOSIDE TEVA [Suspect]
     Active Substance: ETOPOSIDE
     Indication: HODGKIN^S DISEASE
     Dosage: BEACOPP PROTOCOL
     Route: 042
     Dates: start: 20170511, end: 20170511
  2. POLARAMINE 5 MG [Concomitant]
     Indication: PREMEDICATION
     Dates: start: 20170511
  3. METHYLPREDNISOLONE. [Concomitant]
     Active Substance: METHYLPREDNISOLONE
     Indication: PREMEDICATION
     Dates: start: 20170511

REACTIONS (3)
  - Bronchospasm [Recovered/Resolved]
  - Hypertension [Recovered/Resolved]
  - Oxygen saturation decreased [Recovered/Resolved]

NARRATIVE: CASE EVENT DATE: 20170511
